FAERS Safety Report 4476858-7 (Version None)
Quarter: 2004Q4

REPORT INFORMATION
  Report Type: 
  Country: None (occurrence: None)
  Receive Date: 20041013
  Receipt Date: 20040930
  Transmission Date: 20050328
  Serious: Yes (Hospitalization)
  Sender: FDA-Public Use
  Company Number: 207742

PATIENT
  Sex: Male
  Weight: 80 kg

DRUGS (10)
  1. AVASTIN [Suspect]
     Indication: RENAL CELL CARCINOMA STAGE UNSPECIFIED
     Dosage: 10 MG/KG, Q2W, INTRAVENOUS
     Route: 042
     Dates: start: 20040309, end: 20040518
  2. INTERFERON ALFA, BETA, GAMMA(INTERFERON) [Suspect]
     Indication: RENAL CELL CARCINOMA STAGE UNSPECIFIED
     Dosage: SEE IMAGE
     Route: 058
     Dates: start: 20040309, end: 20040420
  3. INTERFERON ALFA, BETA, GAMMA(INTERFERON) [Suspect]
     Indication: RENAL CELL CARCINOMA STAGE UNSPECIFIED
     Dosage: SEE IMAGE
     Route: 058
     Dates: start: 20040420, end: 20040529
  4. VERAPAMIL [Concomitant]
  5. FENTANYL [Concomitant]
  6. SINGULAIR [Concomitant]
  7. SENNA CONCENTRATES (SENNA) [Concomitant]
  8. OXYCODONE (OXYCODONE) [Concomitant]
  9. METOPROLOL TARTRATE [Concomitant]
  10. METAMUCIL (PSYLLIUM HUSK) [Concomitant]

REACTIONS (16)
  - ALANINE AMINOTRANSFERASE INCREASED [None]
  - ARACHNOIDITIS [None]
  - ASPARTATE AMINOTRANSFERASE INCREASED [None]
  - BLOOD ALKALINE PHOSPHATASE INCREASED [None]
  - CONFUSIONAL STATE [None]
  - DRUG EFFECT DECREASED [None]
  - EPSTEIN-BARR VIRUS ANTIBODY POSITIVE [None]
  - EPSTEIN-BARR VIRUS ANTIGEN POSITIVE [None]
  - EYE PAIN [None]
  - MENINGISM [None]
  - MENINGITIS [None]
  - PARVOVIRUS INFECTION [None]
  - PYREXIA [None]
  - RADICULITIS [None]
  - SOMNOLENCE [None]
  - VIRAL INFECTION [None]
